FAERS Safety Report 4853662-9 (Version None)
Quarter: 2005Q4

REPORT INFORMATION
  Report Type: 
  Country: None (occurrence: None)
  Receive Date: 20051125
  Receipt Date: 20050606
  Transmission Date: 20060501
  Serious: Yes (Other)
  Sender: FDA-Public Use
  Company Number: US-JNJFOC-20050601885

PATIENT
  Age: 32 Year
  Sex: Female

DRUGS (1)
  1. LEVAQUIN [Suspect]
     Indication: URINARY TRACT INFECTION
     Dosage: 500 MG
     Dates: start: 20041201

REACTIONS (5)
  - ARTHRALGIA [None]
  - BURNING SENSATION [None]
  - FLUSHING [None]
  - NIGHT SWEATS [None]
  - NIGHTMARE [None]
